FAERS Safety Report 5313149-6 (Version None)
Quarter: 2007Q2

REPORT INFORMATION
  Report Type: 
  Country: None (occurrence: None)
  Receive Date: 20070424
  Receipt Date: 20070413
  Transmission Date: 20071010
  Serious: Yes (Hospitalization)
  Sender: FDA-Public Use
  Company Number: GXKR2007US03453

PATIENT
  Age: 64 Year
  Sex: Male

DRUGS (7)
  1. METFORMIN HCL [Suspect]
     Indication: DIABETES MELLITUS NON-INSULIN-DEPENDENT
     Dosage: 500 MG, BID
  2. LEVOTHYROXINE SODIUM [Concomitant]
  3. MECLIZINE [Concomitant]
  4. NIACIN [Concomitant]
  5. NORTRIPTYLINE HCL [Concomitant]
  6. SIMVASTATIN [Concomitant]
  7. PROMETHAZINE [Concomitant]

REACTIONS (3)
  - DIZZINESS [None]
  - LACTIC ACIDOSIS [None]
  - VERTIGO [None]
